FAERS Safety Report 4969254-7 (Version None)
Quarter: 2006Q2

REPORT INFORMATION
  Report Type: 
  Country: None (occurrence: None)
  Receive Date: 20060411
  Receipt Date: 20060330
  Transmission Date: 20061013
  Serious: Yes (Other)
  Sender: FDA-Public Use
  Company Number: PHBS2006JP04968

PATIENT
  Sex: Male

DRUGS (2)
  1. TEGRETOL [Suspect]
     Indication: EPILEPSY
     Dosage: 300 MG/DAY
     Route: 048
  2. HYDANTOL [Concomitant]
     Indication: EPILEPSY
     Route: 048

REACTIONS (1)
  - OESOPHAGEAL STENOSIS [None]
